FAERS Safety Report 24871492 (Version 3)
Quarter: 2025Q1

REPORT INFORMATION
  Report Type: Report from Study
  Country: US (occurrence: US)
  Receive Date: 20250122
  Receipt Date: 20250324
  Transmission Date: 20250409
  Serious: Yes (Other)
  Sender: NOVARTIS
  Company Number: US-002147023-NVSC2025US009782

PATIENT
  Sex: Female

DRUGS (1)
  1. COSENTYX [Suspect]
     Active Substance: SECUKINUMAB
     Indication: Hidradenitis
     Dosage: 300 MG, QW (ONCE A WEEK)
     Route: 058

REACTIONS (5)
  - Chronic kidney disease [Unknown]
  - Cardiac failure congestive [Unknown]
  - Renal cancer [Unknown]
  - Renal impairment [Unknown]
  - Rhinorrhoea [Unknown]
